FAERS Safety Report 6391120-3 (Version None)
Quarter: 2009Q4

REPORT INFORMATION
  Report Type: 
  Country: None (occurrence: None)
  Receive Date: 20091005
  Receipt Date: 20090929
  Transmission Date: 20100525
  Serious: Yes (Hospitalization)
  Sender: FDA-Public Use
  Company Number: 20097369

PATIENT
  Sex: Female

DRUGS (2)
  1. LIORESAL [Suspect]
     Indication: MUSCLE SPASTICITY
     Dosage: MCG, DAILY, INTRATHECAL
     Route: 039
  2. STEROIDS [Concomitant]

REACTIONS (5)
  - COGNITIVE DISORDER [None]
  - DEVICE RELATED INFECTION [None]
  - FLUID OVERLOAD [None]
  - HYPERTONIA [None]
  - URINARY TRACT INFECTION [None]
